FAERS Safety Report 24130278 (Version 1)
Quarter: 2024Q3

REPORT INFORMATION
  Report Type: Other
  Country: VN (occurrence: VN)
  Receive Date: 20240724
  Receipt Date: 20240724
  Transmission Date: 20241016
  Serious: Yes (Hospitalization)
  Sender: BIONPHARMA
  Company Number: VN-Bion-013492

PATIENT
  Sex: Female

DRUGS (3)
  1. VALPROIC ACID [Suspect]
     Active Substance: VALPROIC ACID
     Indication: Infantile spasms
  2. LEVETIRACETAM [Concomitant]
     Active Substance: LEVETIRACETAM
     Indication: Infantile spasms
  3. VIGABATRIN [Concomitant]
     Active Substance: VIGABATRIN
     Indication: Infantile spasms

REACTIONS (1)
  - Drug resistance [Unknown]
